FAERS Safety Report 8173909-3 (Version None)
Quarter: 2012Q1

REPORT INFORMATION
  Report Type: 
  Country: None (occurrence: None)
  Receive Date: 20120229
  Receipt Date: 20120215
  Transmission Date: 20120608
  Serious: Yes (Other)
  Sender: FDA-Public Use
  Company Number: US-ELI_LILLY_AND_COMPANY-US201202004908

PATIENT
  Age: 15 Year
  Sex: Female

DRUGS (4)
  1. STRATTERA [Suspect]
     Dosage: 40 MG, UNK
  2. STRATTERA [Suspect]
     Indication: ATTENTION DEFICIT/HYPERACTIVITY DISORDER
     Dosage: 60 MG, UNK
     Dates: end: 20120206
  3. STRATTERA [Suspect]
     Dosage: 18 MG, UNK
     Dates: start: 20111223
  4. STRATTERA [Suspect]
     Dosage: 25 MG, UNK

REACTIONS (4)
  - EMOTIONAL DISORDER [None]
  - SUICIDAL IDEATION [None]
  - INAPPROPRIATE AFFECT [None]
  - ABNORMAL BEHAVIOUR [None]
